FAERS Safety Report 4934175-2 (Version None)
Quarter: 2006Q1

REPORT INFORMATION
  Report Type: 
  Country: None (occurrence: None)
  Receive Date: 20060301
  Receipt Date: 20060216
  Transmission Date: 20060701
  Serious: No
  Sender: FDA-Public Use
  Company Number: 222245

PATIENT
  Age: 83 Year
  Sex: Female

DRUGS (1)
  1. AVASTIN [Suspect]
     Dates: start: 20060207

REACTIONS (1)
  - FALL [None]
